FAERS Safety Report 6345440-9 (Version None)
Quarter: 2009Q3

REPORT INFORMATION
  Report Type: 
  Country: None (occurrence: None)
  Receive Date: 20090909
  Receipt Date: 20090902
  Transmission Date: 20100115
  Serious: Yes (Other)
  Sender: FDA-Public Use
  Company Number: FR-AVENTIS-200913298FR

PATIENT
  Age: 37 Year
  Sex: Female

DRUGS (1)
  1. TAXOTERE [Suspect]
     Indication: KAPOSI'S SARCOMA
     Route: 042
     Dates: start: 20090728, end: 20090728

REACTIONS (3)
  - HISTIOCYTOSIS HAEMATOPHAGIC [None]
  - PYREXIA [None]
  - THROMBOCYTOPENIA [None]
